FAERS Safety Report 4604278-0 (Version None)
Quarter: 2005Q1

REPORT INFORMATION
  Report Type: 
  Country: None (occurrence: None)
  Receive Date: 20050131
  Receipt Date: 20040312
  Transmission Date: 20050727
  Serious: Yes (Other)
  Sender: FDA-Public Use
  Company Number: AE04-05

PATIENT
  Sex: Female

DRUGS (4)
  1. VARICELLA-ZOSTER IMMUNE GLOBULIN (HUMAN) [Suspect]
     Indication: IMMUNISATION
     Dates: start: 19870801, end: 19890901
  2. VARICELLA-ZOSTER IMMUNE GLOBULIN (HUMAN) [Suspect]
  3. VARICELLA-ZOSTER IMMUNE GLOBULIN (HUMAN) [Suspect]
  4. VARICELLA-ZOSTER IMMUNE GLOBULIN (HUMAN) [Suspect]

REACTIONS (1)
  - HEPATITIS C [None]
